FAERS Safety Report 8004712-2 (Version None)
Quarter: 2011Q4

REPORT INFORMATION
  Report Type: 
  Country: None (occurrence: None)
  Receive Date: 20111223
  Receipt Date: 20111215
  Transmission Date: 20120403
  Serious: Yes (Other)
  Sender: FDA-Public Use
  Company Number: US-JNJFOC-20111207676

PATIENT
  Sex: Female

DRUGS (8)
  1. FENTANYL-100 [Suspect]
     Dosage: NDC: 0781-7243-55
     Route: 062
     Dates: start: 20110101
  2. FENTANYL-100 [Suspect]
     Indication: FIBROMYALGIA
     Dosage: ONCE EVERY 48 HOURS
     Route: 062
     Dates: start: 20101001, end: 20110101
  3. FENTANYL-100 [Suspect]
     Dosage: NDC: 0781-7243-55
     Route: 062
     Dates: start: 20110101
  4. FENTANYL-100 [Suspect]
     Indication: NECK INJURY
     Dosage: ONCE EVERY 48 HOURS
     Route: 062
     Dates: start: 20101001, end: 20110101
  5. FENTANYL-100 [Suspect]
     Indication: INTERVERTEBRAL DISC PROTRUSION
     Dosage: ONCE EVERY 48 HOURS
     Route: 062
     Dates: start: 20101001, end: 20110101
  6. FENTANYL-100 [Suspect]
     Dosage: NDC: 0781-7243-55
     Route: 062
     Dates: start: 20110101
  7. FENTANYL-100 [Suspect]
     Indication: NERVE INJURY
     Dosage: ONCE EVERY 48 HOURS
     Route: 062
     Dates: start: 20101001, end: 20110101
  8. FENTANYL-100 [Suspect]
     Dosage: NDC: 0781-7243-55
     Route: 062
     Dates: start: 20110101

REACTIONS (7)
  - WRONG TECHNIQUE IN DRUG USAGE PROCESS [None]
  - FATIGUE [None]
  - ABNORMAL LOSS OF WEIGHT [None]
  - PRODUCT QUALITY ISSUE [None]
  - DRUG ADMINISTERED AT INAPPROPRIATE SITE [None]
  - HYPERSOMNIA [None]
  - WITHDRAWAL SYNDROME [None]
